FAERS Safety Report 23798278 (Version 1)
Quarter: 2024Q2

REPORT INFORMATION
  Report Type: Spontaneous
  Country: CA (occurrence: CA)
  Receive Date: 20240430
  Receipt Date: 20240430
  Transmission Date: 20240716
  Serious: Yes (Other)
  Sender: FDA-Public Use
  Company Number: CA-AUROBINDO-AUR-APL-2024-019593

PATIENT
  Age: 61 Year
  Sex: Female

DRUGS (3)
  1. DULOXETINE [Interacting]
     Active Substance: DULOXETINE
     Indication: Neuralgia
     Dosage: 30 MILLIGRAM, ONCE A DAY
     Route: 048
  2. CITALOPRAM [Interacting]
     Active Substance: CITALOPRAM\CITALOPRAM HYDROBROMIDE
     Indication: Neuralgia
     Dosage: 20 MILLIGRAM, ONCE A DAY
     Route: 048
  3. CITALOPRAM [Interacting]
     Active Substance: CITALOPRAM\CITALOPRAM HYDROBROMIDE
     Indication: Depression

REACTIONS (6)
  - Agitation [Recovered/Resolved]
  - Insomnia [Recovered/Resolved]
  - Nausea [Recovered/Resolved]
  - Serotonin syndrome [Recovered/Resolved]
  - Tachycardia [Recovered/Resolved]
  - Drug interaction [Recovered/Resolved]
